FAERS Safety Report 8508246-8 (Version None)
Quarter: 2012Q3

REPORT INFORMATION
  Report Type: 
  Country: None (occurrence: None)
  Receive Date: 20120713
  Receipt Date: 20120629
  Transmission Date: 20120928
  Serious: Yes (Other)
  Sender: FDA-Public Use
  Company Number: JP-BRISTOL-MYERS SQUIBB COMPANY-16763146

PATIENT

DRUGS (2)
  1. ISENTRESS [Suspect]
     Dosage: 400MG TAB
     Route: 048
  2. EFAVIRENZ [Suspect]
     Dosage: 200MG, FILM COATED
     Route: 048

REACTIONS (2)
  - SUICIDE ATTEMPT [None]
  - OVERDOSE [None]
